FAERS Safety Report 5288973-9 (Version None)
Quarter: 2007Q2

REPORT INFORMATION
  Report Type: 
  Country: None (occurrence: None)
  Receive Date: 20070405
  Receipt Date: 20070226
  Transmission Date: 20071010
  Serious: Yes (Other)
  Sender: FDA-Public Use
  Company Number: IT-PFIZER INC-2007016086

PATIENT
  Sex: Male

DRUGS (1)
  1. CARDURA [Suspect]
     Route: 048
     Dates: start: 20070217, end: 20070217

REACTIONS (3)
  - ANGIOEDEMA [None]
  - CONFUSIONAL STATE [None]
  - CONJUNCTIVAL HYPERAEMIA [None]
